FAERS Safety Report 9848983 (Version 1)
Quarter: 2014Q1

REPORT INFORMATION
  Report Type: Spontaneous
  Country: US (occurrence: None)
  Receive Date: 20140124
  Receipt Date: 20140124
  Transmission Date: 20141002
  Serious: Yes (Hospitalization)
  Sender: FDA-Public Use
  Company Number: None

PATIENT
  Age: 43 Year
  Sex: Female
  Weight: 80.74 kg

DRUGS (3)
  1. CYTARABINE [Suspect]
  2. METHOTREXATE [Suspect]
  3. TEMOZOLOMIDE [Suspect]

REACTIONS (6)
  - Nausea [None]
  - Decreased appetite [None]
  - Failure to thrive [None]
  - Asthenia [None]
  - Depression [None]
  - Weight decreased [None]
